FAERS Safety Report 14663686 (Version 4)
Quarter: 2018Q2

REPORT INFORMATION
  Report Type: Spontaneous
  Country: US (occurrence: US)
  Receive Date: 20180321
  Receipt Date: 20180627
  Transmission Date: 20180711
  Serious: No
  Sender: FDA-Public Use
  Company Number: US-PFIZER INC-2018114813

PATIENT
  Age: 87 Year
  Sex: Female

DRUGS (15)
  1. METOPROLOL SUCCINATE. [Concomitant]
     Active Substance: METOPROLOL SUCCINATE
     Dosage: 50 MG, UNK
  2. XANAX [Concomitant]
     Active Substance: ALPRAZOLAM
     Dosage: UNK UNK, AS NEEDED 1 OR 2 TABLETS EVERY 6 TO 12 HOURS]
  3. NEURONTIN [Concomitant]
     Active Substance: GABAPENTIN
     Dosage: 100 MG, 2X/DAY [TWO CAPSULES BY MOUTH EVERY NIGHT AT BEDTIME]
     Route: 048
  4. PROLIA [Concomitant]
     Active Substance: DENOSUMAB
     Dosage: 1 ML, UNK  (INJECT 1 MILLILITER EVERY 6 MONTHS IN THE UPPER ARM UPPER THIGH OR ABDOMEN)
     Route: 058
  5. GABAPENTIN. [Concomitant]
     Active Substance: GABAPENTIN
     Dosage: 50 MG, 2X/DAY (TWO CAPSULES EVERY NIGHT AT BEDTIME)
     Route: 048
  6. IPRATROPIUM [Concomitant]
     Active Substance: IPRATROPIUM
     Dosage: UNK
  7. ZOFRAN [Concomitant]
     Active Substance: ONDANSETRON HYDROCHLORIDE
     Indication: NAUSEA
     Dosage: 4 MG, AS NEEDED, [EVERY 4 TO 6 HOURS]
     Route: 060
  8. CHERATUSSIN AC [Concomitant]
     Active Substance: CODEINE PHOSPHATE\GUAIFENESIN
     Dosage: UNK, AS NEEDED (CODEINE-10MG,GUAIFENESIN-100 MG]/5ML) ONE TO TWO TEASPOONFULS BY MOUTH EVERY 4 TO 6
     Route: 048
  9. IBRANCE [Suspect]
     Active Substance: PALBOCICLIB
     Indication: BREAST CANCER METASTATIC
     Dosage: 100 MG, CYCLIC, (TAKE ONE CAPSULE BY MOUTH ONCE DAILY WITH FOOD FOR 21 DAYS, THEN 7 DAYS OFF)
     Route: 048
     Dates: start: 20170821
  10. TOPROL XL [Concomitant]
     Active Substance: METOPROLOL SUCCINATE
     Dosage: 25 MG, 1X/DAY (EVERY NIGHT AT BEDTIME)
     Route: 048
  11. TOPICORT [Concomitant]
     Active Substance: DESOXIMETASONE
     Dosage: UNK, 2X/WEEK APPLY 2 TIMES A WEEK
     Route: 061
  12. VITAMIN D3 [Concomitant]
     Active Substance: CHOLECALCIFEROL
     Dosage: 2000 IU, DAILY
     Route: 048
  13. ATROVENT [Concomitant]
     Active Substance: IPRATROPIUM BROMIDE
     Dosage: UNK UNK, 2X/DAY (INSTILL 2 SPRAYS INTO EACH NOSTRIL )
     Route: 045
  14. VITAMIN B12 [Concomitant]
     Active Substance: CYANOCOBALAMIN
     Dosage: 1000 UG, 1X/DAY
     Route: 048
  15. LETROZOLE. [Concomitant]
     Active Substance: LETROZOLE
     Dosage: 2.5 MG, UNK

REACTIONS (1)
  - Alopecia [Not Recovered/Not Resolved]

NARRATIVE: CASE EVENT DATE: 20180214
